FAERS Safety Report 14963265 (Version 1)
Quarter: 2018Q2

REPORT INFORMATION
  Report Type: Spontaneous
  Country: US (occurrence: US)
  Receive Date: 20180601
  Receipt Date: 20180601
  Transmission Date: 20180711
  Serious: Yes (Hospitalization, Other)
  Sender: FDA-Public Use
  Company Number: US-GLAXOSMITHKLINE-US2018GSK096555

PATIENT
  Sex: Female

DRUGS (3)
  1. LAMOTRIGINE. [Suspect]
     Active Substance: LAMOTRIGINE
  2. LAMICTAL [Concomitant]
     Active Substance: LAMOTRIGINE
  3. LAMICTAL XR [Concomitant]
     Active Substance: LAMOTRIGINE

REACTIONS (4)
  - Concussion [Unknown]
  - Seizure [Unknown]
  - Hospitalisation [Unknown]
  - Product substitution issue [Unknown]
